FAERS Safety Report 25813789 (Version 1)
Quarter: 2025Q3

REPORT INFORMATION
  Report Type: Spontaneous
  Country: EU (occurrence: EU)
  Receive Date: 20250917
  Receipt Date: 20250917
  Transmission Date: 20251021
  Serious: Yes (Disabling)
  Sender: MYLAN
  Company Number: None

PATIENT
  Age: 75 Year
  Sex: Male
  Weight: 99 kg

DRUGS (5)
  1. NEURONTIN [Suspect]
     Active Substance: GABAPENTIN
     Indication: Back pain
     Dosage: 3 DOSAGE FORM, BID (1 TABLET MORNING, 2 TABLET EVENING)
     Dates: start: 20241030, end: 20250627
  2. RYBELSUS [Concomitant]
     Active Substance: SEMAGLUTIDE
  3. BUPRENORPHINE [Concomitant]
     Active Substance: BUPRENORPHINE
  4. FINASTERIDE [Concomitant]
     Active Substance: FINASTERIDE
  5. SODIUM PICOSULFATE [Concomitant]
     Active Substance: SODIUM PICOSULFATE

REACTIONS (1)
  - Gynaecomastia [Not Recovered/Not Resolved]

NARRATIVE: CASE EVENT DATE: 20250402
